FAERS Safety Report 9407510 (Version 1)
Quarter: 2013Q3

REPORT INFORMATION
  Report Type: Spontaneous
  Country: JP (occurrence: JP)
  Receive Date: 20130718
  Receipt Date: 20130718
  Transmission Date: 20140515
  Serious: Yes (Hospitalization)
  Sender: FDA-Public Use
  Company Number: PHHY2013JP051955

PATIENT
  Sex: Male
  Weight: 50 kg

DRUGS (2)
  1. NEORAL [Suspect]
     Indication: PSORIASIS
     Dosage: 100 MG, UNK
     Route: 048
  2. NEORAL [Suspect]
     Dosage: 50 MG, UNK
     Route: 048

REACTIONS (2)
  - Onychoclasis [Not Recovered/Not Resolved]
  - Oedema peripheral [Recovering/Resolving]
